FAERS Safety Report 4940028-6 (Version None)
Quarter: 2006Q1

REPORT INFORMATION
  Report Type: 
  Country: None (occurrence: None)
  Receive Date: 20060310
  Receipt Date: 20050909
  Transmission Date: 20060701
  Serious: Yes (Hospitalization)
  Sender: FDA-Public Use
  Company Number: FR-BRISTOL-MYERS SQUIBB COMPANY-13105986

PATIENT
  Age: 48 Year
  Sex: Female

DRUGS (3)
  1. SUSTIVA [Suspect]
     Route: 048
  2. VIREAD [Concomitant]
  3. EPIVIR [Concomitant]

REACTIONS (1)
  - NEPHROLITHIASIS [None]
